FAERS Safety Report 8433173 (Version 4)
Quarter: 2012Q4

REPORT INFORMATION
  Report Type: 
  Country: FR (occurrence: FR)
  Receive Date: 20120229
  Receipt Date: 20121017
  Transmission Date: 20130627
  Serious: Yes (Hospitalization)
  Sender: FDA-Public Use
  Company Number: FR-JNJFOC-20120212042

PATIENT
  Age: 25 Year
  Sex: Male

DRUGS (2)
  1. STELARA [Suspect]
     Indication: PSORIASIS
     Route: 058
     Dates: start: 201105, end: 201109
  2. AMLODIPINE [Concomitant]
     Indication: HYPERTENSION
     Dosage: initiated 4 to 5 years before report
     Route: 065

REACTIONS (7)
  - Bladder ablation [Unknown]
  - Urostomy [Unknown]
  - Urethrectomy [Unknown]
  - Urinary tract infection [Recovering/Resolving]
  - Fistula [Recovering/Resolving]
  - Psoriasis [Unknown]
  - Weight decreased [Unknown]
